FAERS Safety Report 10368308 (Version 1)
Quarter: 2014Q3

REPORT INFORMATION
  Report Type: Spontaneous
  Country: US (occurrence: US)
  Receive Date: 20140807
  Receipt Date: 20140807
  Transmission Date: 20150326
  Serious: No
  Sender: FDA-Public Use
  Company Number: US-PFIZER INC-2014219255

PATIENT
  Age: 65 Year
  Sex: Female
  Weight: 108.8 kg

DRUGS (2)
  1. ATENOLOL. [Concomitant]
     Active Substance: ATENOLOL
     Indication: HYPERTENSION
     Dosage: UNK
  2. CELEBREX [Suspect]
     Active Substance: CELECOXIB
     Indication: POSTOPERATIVE CARE
     Dosage: 400 MG, 2X/DAY
     Route: 048
     Dates: start: 20140723, end: 20140725

REACTIONS (5)
  - Dyspnoea [Unknown]
  - Pruritus [Unknown]
  - Vomiting [Unknown]
  - Abdominal discomfort [Unknown]
  - Headache [Unknown]

NARRATIVE: CASE EVENT DATE: 2014
